FAERS Safety Report 4341939-5 (Version None)
Quarter: 2004Q2

REPORT INFORMATION
  Report Type: 
  Country: None (occurrence: None)
  Receive Date: 20040415
  Receipt Date: 20040331
  Transmission Date: 20050107
  Serious: Yes (Other)
  Sender: FDA-Public Use
  Company Number: USA040362869

PATIENT
  Age: 11 Year
  Sex: Male
  Weight: 35 kg

DRUGS (3)
  1. STRATTERA [Suspect]
     Indication: ATTENTION DEFICIT/HYPERACTIVITY DISORDER
     Dosage: 18 MG DAY
     Dates: end: 20040201
  2. CONCERTA [Concomitant]
  3. RITALIN [Concomitant]

REACTIONS (6)
  - FATIGUE [None]
  - INFLUENZA [None]
  - OPTIC NERVE INJURY [None]
  - TIC [None]
  - VISION BLURRED [None]
  - WEIGHT DECREASED [None]
